FAERS Safety Report 11315233 (Version 1)
Quarter: 2015Q3

REPORT INFORMATION
  Report Type: Spontaneous
  Country: US (occurrence: US)
  Receive Date: 20150727
  Receipt Date: 20150727
  Transmission Date: 20151125
  Serious: No
  Sender: FDA-Public Use
  Company Number: US-TAKEDA-2015TUS005922

PATIENT
  Age: 36 Year
  Sex: Female

DRUGS (3)
  1. VYVANSE [Concomitant]
     Active Substance: LISDEXAMFETAMINE DIMESYLATE
     Indication: ATTENTION DEFICIT/HYPERACTIVITY DISORDER
     Dosage: 70 MG, EVERY MORNING
     Dates: start: 20150319, end: 20150428
  2. BRINTELLIX [Suspect]
     Active Substance: VORTIOXETINE HYDROBROMIDE
     Dosage: 10 MG ONE TABLET, QD
     Route: 048
     Dates: start: 20150422, end: 20150505
  3. BRINTELLIX [Suspect]
     Active Substance: VORTIOXETINE HYDROBROMIDE
     Indication: MAJOR DEPRESSION
     Dosage: 5 MG ONE TABLET, QD
     Route: 048
     Dates: start: 20150414, end: 20150421

REACTIONS (1)
  - Appetite disorder [Recovered/Resolved]

NARRATIVE: CASE EVENT DATE: 20150414
